FAERS Safety Report 12309302 (Version 2)
Quarter: 2019Q1

REPORT INFORMATION
  Report Type: Report from Study
  Country: FR (occurrence: FR)
  Receive Date: 20160427
  Receipt Date: 20190121
  Transmission Date: 20190417
  Serious: Yes (Other)
  Sender: FDA-Public Use
  Company Number: FR-BRISTOL-MYERS SQUIBB COMPANY-BMS-2016-030924

PATIENT
  Age: 7 Decade
  Sex: Female

DRUGS (1)
  1. ABATACEPT [Suspect]
     Active Substance: ABATACEPT
     Indication: RHEUMATOID ARTHRITIS
     Dosage: 125 MG, QWK
     Route: 058
     Dates: start: 20150318, end: 20160307

REACTIONS (2)
  - Neoplasm [Recovered/Resolved with Sequelae]
  - Skin neoplasm excision [Unknown]

NARRATIVE: CASE EVENT DATE: 201601
